FAERS Safety Report 4668364-1 (Version None)
Quarter: 2005Q2

REPORT INFORMATION
  Report Type: 
  Country: None (occurrence: None)
  Receive Date: 20050523
  Receipt Date: 20050512
  Transmission Date: 20051028
  Serious: Yes (Hospitalization)
  Sender: FDA-Public Use
  Company Number: US-JNJFOC-20050503277

PATIENT
  Sex: Female
  Weight: 86.18 kg

DRUGS (21)
  1. INFLIXIMAB [Suspect]
     Indication: RHEUMATOID ARTHRITIS
     Route: 042
  2. ELAVIL [Concomitant]
  3. FOLIC ACID [Concomitant]
  4. METHOTREXATE [Concomitant]
  5. PLAQUENIL [Concomitant]
  6. MULTI-VITAMIN [Concomitant]
  7. MULTI-VITAMIN [Concomitant]
  8. MULTI-VITAMIN [Concomitant]
  9. MULTI-VITAMIN [Concomitant]
  10. MULTI-VITAMIN [Concomitant]
  11. MULTI-VITAMIN [Concomitant]
  12. MULTI-VITAMIN [Concomitant]
  13. MULTI-VITAMIN [Concomitant]
  14. PREDNISONE [Concomitant]
  15. PRILOSEC [Concomitant]
  16. MOBIC [Concomitant]
  17. GLUCOSAMINE CHONDROITIN [Concomitant]
  18. GLUCOSAMINE CHONDROITIN [Concomitant]
  19. GLUCOSAMINE CHONDROITIN [Concomitant]
  20. GLUCOSAMINE CHONDROITIN [Concomitant]
  21. CALCIUM GLUCONATE [Concomitant]

REACTIONS (1)
  - LISTERIOSIS [None]
